FAERS Safety Report 8059172-2 (Version None)
Quarter: 2012Q1

REPORT INFORMATION
  Report Type: 
  Country: None (occurrence: None)
  Receive Date: 20120113
  Receipt Date: 20120109
  Transmission Date: 20120608
  Serious: Yes (Other)
  Sender: FDA-Public Use
  Company Number: ADR-2011-11601

PATIENT
  Sex: Male

DRUGS (2)
  1. DILAUDID [Concomitant]
  2. BACLOFEN [Suspect]
     Indication: BACK PAIN

REACTIONS (6)
  - CONFUSIONAL STATE [None]
  - PAIN [None]
  - BACK PAIN [None]
  - HAEMATOCHEZIA [None]
  - FALL [None]
  - DEVICE ALARM ISSUE [None]
